FAERS Safety Report 15082398 (Version 1)
Quarter: 2018Q2

REPORT INFORMATION
  Report Type: Spontaneous
  Country: US (occurrence: US)
  Receive Date: 20180628
  Receipt Date: 20180628
  Transmission Date: 20180711
  Serious: No
  Sender: FDA-Public Use
  Company Number: PHEH2018US026331

PATIENT
  Sex: Female
  Weight: 80.73 kg

DRUGS (2)
  1. MEKINIST [Suspect]
     Active Substance: TRAMETINIB DIMETHYL SULFOXIDE
     Indication: METASTASIS
     Dosage: 2 MG, QMO
     Route: 048
     Dates: start: 20180602
  2. TAFINLAR [Suspect]
     Active Substance: DABRAFENIB MESYLATE
     Indication: METASTASIS
     Dosage: 75 MG, UNK
     Route: 048
     Dates: start: 20180602

REACTIONS (3)
  - Decreased appetite [Not Recovered/Not Resolved]
  - Dysgeusia [Not Recovered/Not Resolved]
  - Eating disorder [Not Recovered/Not Resolved]
